FAERS Safety Report 6103850-9 (Version None)
Quarter: 2009Q1

REPORT INFORMATION
  Report Type: 
  Country: None (occurrence: None)
  Receive Date: 20090227
  Receipt Date: 20090220
  Transmission Date: 20090719
  Serious: Yes (Other)
  Sender: FDA-Public Use
  Company Number: 56923

PATIENT
  Age: 57 Year
  Sex: Male

DRUGS (1)
  1. LABETALOL HCL [Suspect]
     Indication: HYPERTENSION

REACTIONS (4)
  - CHILLS [None]
  - MALAISE [None]
  - PLEURITIC PAIN [None]
  - PYREXIA [None]
